FAERS Safety Report 7550514-0 (Version None)
Quarter: 2011Q2

REPORT INFORMATION
  Report Type: 
  Country: None (occurrence: None)
  Receive Date: 20110615
  Receipt Date: 20110606
  Transmission Date: 20111010
  Serious: Yes (Hospitalization, Other)
  Sender: FDA-Public Use
  Company Number: US-ELI_LILLY_AND_COMPANY-US201105000223

PATIENT
  Sex: Male

DRUGS (11)
  1. TAMSULOSIN HCL [Concomitant]
     Dosage: UNK, UNKNOWN
     Route: 065
  2. FLUOXETINE HYDROCHLORIDE [Concomitant]
     Dosage: UNK, UNKNOWN
     Route: 065
  3. ASPIRIN [Concomitant]
     Dosage: UNK, UNKNOWN
     Route: 065
  4. OMEPRAZOLE [Concomitant]
     Dosage: UNK, UNKNOWN
     Route: 065
  5. HYDROCODONE [Concomitant]
     Dosage: UNK, UNKNOWN
     Route: 065
  6. CYMBALTA [Suspect]
     Indication: DEPRESSION
     Dosage: 60 MG, UNKNOWN
     Route: 065
     Dates: end: 20110201
  7. CYMBALTA [Suspect]
     Dosage: 20 MG, UNK
  8. CYMBALTA [Suspect]
     Dosage: 60 MG, UNK
  9. ENALAPRIL MALEATE [Concomitant]
     Dosage: UNK, UNKNOWN
     Route: 065
  10. CYMBALTA [Suspect]
     Dosage: 30 MG, UNK
  11. TRAZODONE HCL [Concomitant]
     Dosage: UNK, UNKNOWN
     Route: 065

REACTIONS (18)
  - DEHYDRATION [None]
  - ABDOMINAL SYMPTOM [None]
  - PAIN [None]
  - ASTHENIA [None]
  - DECREASED APPETITE [None]
  - HYPOTONIA [None]
  - WITHDRAWAL SYNDROME [None]
  - SYNCOPE [None]
  - MALAISE [None]
  - GASTROINTESTINAL INFLAMMATION [None]
  - EAR DISORDER [None]
  - MUSCULOSKELETAL DISCOMFORT [None]
  - ABDOMINAL PAIN [None]
  - CROHN'S DISEASE [None]
  - APATHY [None]
  - EAR OPERATION [None]
  - FIBROMYALGIA [None]
  - INFLAMMATION [None]
